FAERS Safety Report 6029056-X (Version None)
Quarter: 2009Q1

REPORT INFORMATION
  Report Type: 
  Country: None (occurrence: None)
  Receive Date: 20090106
  Receipt Date: 20081229
  Transmission Date: 20090719
  Serious: Yes (Hospitalization, Other)
  Sender: FDA-Public Use
  Company Number: US-ELI_LILLY_AND_COMPANY-US200810001146

PATIENT
  Sex: Female
  Weight: 104.31 kg

DRUGS (9)
  1. EVISTA [Suspect]
     Indication: OSTEOPOROSIS
     Dosage: 60 MG, UNKNOWN
     Route: 065
     Dates: start: 20000301, end: 20080901
  2. ADVAIR DISKUS 100/50 [Concomitant]
     Dosage: UNK, 2/D
     Route: 055
  3. ALPRAZOLAM [Concomitant]
     Dosage: 1 MG, 2/D
     Route: 048
  4. AVALIDE [Concomitant]
     Dosage: UNK, DAILY (1/D)
     Route: 048
  5. CITALOPRAM HYDROBROMIDE [Concomitant]
     Dosage: 40 MG, DAILY (1/D)
     Route: 048
  6. LEVOXYL [Concomitant]
     Dosage: 125 UG, DAILY (1/D)
     Route: 048
  7. TRAZODONE HCL [Concomitant]
     Dosage: 100 MG, EACH EVENING
     Route: 048
  8. ZOCOR [Concomitant]
     Dosage: 20 MG, EACH EVENING
     Route: 048
  9. MOBIC [Concomitant]
     Dosage: 15 MG, DAILY (1/D)
     Route: 048

REACTIONS (11)
  - ACTINIC KERATOSIS [None]
  - BREAST CANCER [None]
  - BREAST CANCER RECURRENT [None]
  - DEPRESSION [None]
  - FATIGUE [None]
  - HYPERKERATOSIS [None]
  - MELANOCYTIC NAEVUS [None]
  - NO THERAPEUTIC RESPONSE [None]
  - RADICULAR PAIN [None]
  - RASH PAPULAR [None]
  - SEBORRHOEIC DERMATITIS [None]
